FAERS Safety Report 26114580 (Version 1)
Quarter: 2025Q4

REPORT INFORMATION
  Report Type: Spontaneous
  Country: BY (occurrence: BY)
  Receive Date: 20251202
  Receipt Date: 20251202
  Transmission Date: 20260118
  Serious: Yes (Other)
  Sender: ORGANON
  Company Number: BY-SANDOZ-SDZ2025BY083611

PATIENT
  Age: 27 Year
  Sex: Female
  Weight: 90 kg

DRUGS (1)
  1. MOMETASONE FUROATE [Suspect]
     Active Substance: MOMETASONE FUROATE
     Indication: Otolaryngoscopy
     Dosage: 2 SPRAYS IN EACH NOSTRIL 2 PRESCRIBED BY AN DEC-2024 / DEC-2024; NASAL SPRAY, SUSPENSION; REGIMEN #1 TIMES DAILY/ 2 IRRIGATIONS 2 OTOLARYNGOLOGIST BEFORE A UNKNOWN TIMES A DAY; NASAL USE
     Dates: start: 202412, end: 202412

REACTIONS (1)
  - Blood pressure increased [Recovering/Resolving]

NARRATIVE: CASE EVENT DATE: 20241201
